FAERS Safety Report 5663123-5 (Version None)
Quarter: 2008Q1

REPORT INFORMATION
  Report Type: 
  Country: None (occurrence: None)
  Receive Date: 20080313
  Receipt Date: 20080310
  Transmission Date: 20080703
  Serious: Yes (Hospitalization)
  Sender: FDA-Public Use
  Company Number: B0511242A

PATIENT
  Age: 2 Year
  Sex: Female

DRUGS (2)
  1. AMOXICILLIN + CLAVULANATE POTASSIUM [Suspect]
     Indication: ACUTE TONSILLITIS
     Dosage: 10.5ML PER DAY
     Route: 048
     Dates: start: 20080205, end: 20080212
  2. CLENIL [Concomitant]
     Indication: ACUTE TONSILLITIS
     Route: 055
     Dates: start: 20080210, end: 20080212

REACTIONS (1)
  - TOXIC SKIN ERUPTION [None]
